FAERS Safety Report 8107420-2 (Version None)
Quarter: 2012Q1

REPORT INFORMATION
  Report Type: 
  Country: None (occurrence: None)
  Receive Date: 20120202
  Receipt Date: 20120127
  Transmission Date: 20120608
  Serious: Yes (Death, Life-Threatening, Hospitalization)
  Sender: FDA-Public Use
  Company Number: FR-ELI_LILLY_AND_COMPANY-FR201201008265

PATIENT
  Age: 54 Year
  Sex: Female

DRUGS (3)
  1. EFFIENT [Suspect]
     Dosage: 120 MG, QD
     Dates: start: 20111130
  2. HEPARIN [Concomitant]
     Dosage: 5000 IU, UNK
  3. ARIXTRA [Concomitant]
     Dosage: 2.5MG/0.5ML, UNK
     Dates: start: 20111130

REACTIONS (7)
  - RETROPERITONEAL HAEMATOMA [None]
  - METABOLIC DISORDER [None]
  - SHOCK HAEMORRHAGIC [None]
  - PUNCTURE SITE HAEMORRHAGE [None]
  - OFF LABEL USE [None]
  - COAGULOPATHY [None]
  - CIRCULATORY COLLAPSE [None]
